FAERS Safety Report 10384552 (Version 1)
Quarter: 2014Q3

REPORT INFORMATION
  Report Type: Spontaneous
  Country: US (occurrence: US)
  Receive Date: 20140814
  Receipt Date: 20140814
  Transmission Date: 20150326
  Serious: No
  Sender: FDA-Public Use
  Company Number: US-009507513-1407USA012079

PATIENT
  Age: 29 Year
  Sex: Female
  Weight: 68.27 kg

DRUGS (1)
  1. NUVARING [Suspect]
     Active Substance: ETHINYL ESTRADIOL\ETONOGESTREL
     Indication: DEVICE EXPULSION
     Dosage: UNK
     Route: 067

REACTIONS (3)
  - Lymphadenopathy [Unknown]
  - Headache [Unknown]
  - Oropharyngeal pain [Unknown]
